FAERS Safety Report 23211343 (Version 6)
Quarter: 2024Q3

REPORT INFORMATION
  Report Type: Spontaneous
  Country: US (occurrence: US)
  Receive Date: 20231121
  Receipt Date: 20240816
  Transmission Date: 20241017
  Serious: Yes (Other)
  Sender: PFIZER
  Company Number: US-PFIZER INC-202300372565

PATIENT
  Age: 37 Year
  Sex: Female
  Weight: 117.93 kg

DRUGS (1)
  1. OXBRYTA [Suspect]
     Active Substance: VOXELOTOR
     Dosage: 1500 MG, 1X/DAY (500 MG, 3 TABLETS ONCE DAILY)
     Route: 048
     Dates: start: 202309, end: 2024

REACTIONS (3)
  - Dental operation [Unknown]
  - Arthropathy [Unknown]
  - Gastrointestinal disorder [Unknown]

NARRATIVE: CASE EVENT DATE: 20231114
